FAERS Safety Report 18126226 (Version 1)
Quarter: 2020Q3

REPORT INFORMATION
  Report Type: Spontaneous
  Country: CA (occurrence: CA)
  Receive Date: 20200808
  Receipt Date: 20200808
  Transmission Date: 20201103
  Serious: Yes (Death, Other)
  Sender: FDA-Public Use
  Company Number: CA-009507513-2008CAN002255

PATIENT
  Age: 64 Year
  Sex: Male

DRUGS (4)
  1. GEMCITABINE. [Suspect]
     Active Substance: GEMCITABINE
     Indication: SQUAMOUS CELL CARCINOMA
     Dosage: DOSAGE FORM: UNSPECIFIED
     Route: 065
  2. ZOLINZA [Suspect]
     Active Substance: VORINOSTAT
     Indication: SQUAMOUS CELL CARCINOMA
     Dosage: UNK
     Route: 065
  3. CAPECITABINE. [Suspect]
     Active Substance: CAPECITABINE
     Indication: SQUAMOUS CELL CARCINOMA
     Dosage: DOSAGE FORM: UNSPECIFIED
  4. PAMIDRONATE DISODIUM. [Suspect]
     Active Substance: PAMIDRONATE DISODIUM
     Indication: HYPERCALCAEMIA
     Dosage: 90 MILLIGRAM
     Route: 042

REACTIONS (8)
  - Coma [Fatal]
  - Muscle spasms [Fatal]
  - Fatigue [Fatal]
  - Hypocalcaemia [Fatal]
  - Metastases to central nervous system [Fatal]
  - Metastases to lung [Fatal]
  - Somnolence [Fatal]
  - Malignant neoplasm progression [Fatal]
